FAERS Safety Report 5720140-4 (Version None)
Quarter: 2008Q2

REPORT INFORMATION
  Report Type: 
  Country: None (occurrence: None)
  Receive Date: 20080428
  Receipt Date: 20071114
  Transmission Date: 20081010
  Serious: No
  Sender: FDA-Public Use
  Company Number: US-AMGEN-US252622

PATIENT
  Age: 49 Year
  Sex: Female

DRUGS (4)
  1. SENSIPAR [Suspect]
     Indication: HYPERPARATHYROIDISM SECONDARY
     Route: 065
     Dates: start: 20070501
  2. EPOGEN [Concomitant]
     Indication: DIALYSIS
     Route: 065
     Dates: start: 19920101
  3. NORVASC [Concomitant]
     Route: 065
  4. RENALTABS [Concomitant]
     Route: 065

REACTIONS (3)
  - NAUSEA [None]
  - TOOTH EROSION [None]
  - VOMITING [None]
